FAERS Safety Report 10765080 (Version 1)
Quarter: 2015Q1

REPORT INFORMATION
  Report Type: Spontaneous
  Country: US (occurrence: None)
  Receive Date: 20150204
  Receipt Date: 20150204
  Transmission Date: 20150721
  Serious: Yes (Hospitalization)
  Sender: FDA-Public Use
  Company Number: None

PATIENT
  Age: 5 Year
  Sex: Female
  Weight: 18.1 kg

DRUGS (1)
  1. PEGINTERFERON ALFA-2B [Suspect]
     Active Substance: PEGINTERFERON ALFA-2B
     Dates: end: 20150129

REACTIONS (7)
  - Brain oedema [None]
  - Subdural haematoma [None]
  - Cerebral cyst [None]
  - Cerebral infarction [None]
  - Cerebral ischaemia [None]
  - Condition aggravated [None]
  - Intracranial pressure increased [None]

NARRATIVE: CASE EVENT DATE: 20150131
